FAERS Safety Report 7511827-1 (Version None)
Quarter: 2011Q2

REPORT INFORMATION
  Report Type: 
  Country: None (occurrence: None)
  Receive Date: 20110531
  Receipt Date: 20110523
  Transmission Date: 20111010
  Serious: Yes (Other)
  Sender: FDA-Public Use
  Company Number: JP-PFIZER INC-2011110725

PATIENT
  Age: 82 Year
  Sex: Female

DRUGS (1)
  1. UNASYN [Suspect]
     Dosage: 1.5 G, 2X/DAY
     Route: 042
     Dates: start: 20110521

REACTIONS (2)
  - HEPATIC FUNCTION ABNORMAL [None]
  - INTERSTITIAL LUNG DISEASE [None]
